FAERS Safety Report 9714305 (Version 2)
Quarter: 2013Q4

REPORT INFORMATION
  Report Type: Spontaneous
  Country: US (occurrence: US)
  Receive Date: 20131126
  Receipt Date: 20131126
  Transmission Date: 20140711
  Serious: No
  Sender: FDA-Public Use
  Company Number: US-GILEAD-2008-0018728

PATIENT
  Sex: Female
  Weight: 116.12 kg

DRUGS (11)
  1. LETAIRIS [Suspect]
     Indication: PULMONARY ARTERIAL HYPERTENSION
     Route: 048
     Dates: start: 20081001, end: 20081018
  2. OXYGEN [Concomitant]
  3. REMDOULIN [Concomitant]
     Indication: PULMONARY ARTERIAL HYPERTENSION
  4. LASIX [Concomitant]
  5. DIGOXIN [Concomitant]
  6. IMODIUM AD [Concomitant]
  7. LEXAPRO [Concomitant]
  8. AMBIEN [Concomitant]
  9. HYOSCYAMINE [Concomitant]
  10. MULTIVITAMINS [Concomitant]
  11. NEXIUM [Concomitant]

REACTIONS (2)
  - Malaise [Recovered/Resolved]
  - Dyspnoea [Recovered/Resolved]
